FAERS Safety Report 22626982 (Version 1)
Quarter: 2023Q2

REPORT INFORMATION
  Report Type: Spontaneous
  Country: IT (occurrence: IT)
  Receive Date: 20230622
  Receipt Date: 20230622
  Transmission Date: 20230722
  Serious: Yes (Hospitalization)
  Sender: FDA-Public Use
  Company Number: IT-MINISAL02-929572

PATIENT
  Age: 9 Year
  Sex: Male
  Weight: 19 kg

DRUGS (11)
  1. AMIODARONE [Suspect]
     Active Substance: AMIODARONE
     Indication: Product used for unknown indication
     Dosage: 100 MILLIGRAM, ONCE A DAY(AMIODARONE 100 MG/DIE)
     Route: 048
  2. FUROSEMIDE [Suspect]
     Active Substance: FUROSEMIDE
     Indication: Product used for unknown indication
     Dosage: 5 MILLIGRAM, AS NECESSARY(LASIX 5 MG AS NEEDED (ADMINISTERED 10 MG ON 01/06, 5 MG ON 02-03-04-05-06/
     Route: 051
  3. MEROPENEM [Suspect]
     Active Substance: MEROPENEM
     Indication: Product used for unknown indication
     Dosage: 1.8 GRAM, ONCE A DAY(MERONEM 600 MG 3 TIMES A DAY (EXPECTED UNTIL 07/06))
     Route: 051
  4. OMEPRAZOLE [Suspect]
     Active Substance: OMEPRAZOLE
     Indication: Product used for unknown indication
     Dosage: 20 MILLIGRAM, ONCE A DAY(OMEPRAZOLE 20 MG/DAY)
     Route: 051
  5. TOPIRAMATE [Suspect]
     Active Substance: TOPIRAMATE
     Indication: Product used for unknown indication
     Dosage: 25 MILLIGRAM, ONCE A DAY(TOPIRAMATE 12.5 MG TWICE A DAY)
     Route: 048
  6. VALPROIC ACID [Suspect]
     Active Substance: VALPROIC ACID
     Indication: Product used for unknown indication
     Dosage: 500 MILLIGRAM, ONCE A DAY(DEPAKIN SACHETS: 250 MG X 2 TIMES/DAY)
     Route: 048
  7. DAPTOMYCIN [Suspect]
     Active Substance: DAPTOMYCIN
     Indication: Product used for unknown indication
     Dosage: 140 MILLIGRAM, ONCE A DAY(DAPTOMYCIN 140 MG/DAY (EXPECTED UNTIL 09/06))
     Route: 051
  8. ASPIRIN DL-LYSINE [Suspect]
     Active Substance: ASPIRIN DL-LYSINE
     Indication: Product used for unknown indication
     Dosage: 75 MILLIGRAM, ONCE A DAY(CARDIRENE 75 MG/DIE)
     Route: 048
  9. CALCIFEDIOL [Suspect]
     Active Substance: CALCIFEDIOL
     Indication: Product used for unknown indication
     Dosage: 3 GTT DROPS, ONCE A DAY(DIHYDROGYL 3 GOCCE/DIE)
     Route: 048
  10. CLOBAZAM [Suspect]
     Active Substance: CLOBAZAM
     Indication: Product used for unknown indication
     Dosage: UNK(CLOBAZAM 2.5 MG + 5 MG /DIE)
     Route: 048
  11. ETHOSUXIMIDE [Suspect]
     Active Substance: ETHOSUXIMIDE
     Indication: Product used for unknown indication
     Dosage: UNK(ETHOSUXIMIDE 250 MG + 300 MG (ADDITIONAL STOPOVER PLANNED))
     Route: 048

REACTIONS (1)
  - Oliguria [Not Recovered/Not Resolved]

NARRATIVE: CASE EVENT DATE: 20230528
